FAERS Safety Report 4819970-2 (Version None)
Quarter: 2005Q4

REPORT INFORMATION
  Report Type: 
  Country: None (occurrence: None)
  Receive Date: 20051102
  Receipt Date: 20051024
  Transmission Date: 20060501
  Serious: Yes (Death)
  Sender: FDA-Public Use
  Company Number: 2005071775

PATIENT
  Sex: Female

DRUGS (4)
  1. PREDNISONE [Suspect]
     Indication: ILL-DEFINED DISORDER
     Dosage: UNKNOWN
     Route: 065
  2. ATROVENT [Suspect]
     Indication: ILL-DEFINED DISORDER
     Dosage: UNKNOWN (20 MCG, UNKNOWN), INHALATION
     Route: 055
  3. ALBUTEROL [Suspect]
     Indication: ILL-DEFINED DISORDER
     Dosage: UNKNOWN (INHALATION)
     Route: 055
  4. FOSAMAX [Suspect]
     Indication: ILL-DEFINED DISORDER
     Dosage: UNKNOWN
     Route: 065

REACTIONS (2)
  - CARDIAC FAILURE [None]
  - INFECTIVE EXACERBATION OF CHRONIC OBSTRUCTIVE AIRWAYS DISEASE [None]
